FAERS Safety Report 8112239-2 (Version None)
Quarter: 2011Q4

REPORT INFORMATION
  Report Type: 
  Country: None (occurrence: None)
  Receive Date: 20111223
  Receipt Date: 20110310
  Transmission Date: 20120403
  Serious: Yes (Other)
  Sender: FDA-Public Use
  Company Number: PHHY2011US20161

PATIENT
  Age: 4 Year
  Sex: Male

DRUGS (1)
  1. FOCALIN XR [Suspect]
     Dosage: 10 MG, ORAL : 15 MG, ORAL : 20 MG, ORAL : 30 MG (1,20MG IN THE MORNING AND 1, 10 MG IN THE AFTERNOON
     Route: 048

REACTIONS (1)
  - HYPERTENSION [None]
